FAERS Safety Report 9324416 (Version 1)
Quarter: 2013Q2

REPORT INFORMATION
  Report Type: Spontaneous
  Country: US (occurrence: US)
  Receive Date: 20130603
  Receipt Date: 20130603
  Transmission Date: 20140414
  Serious: Yes (Other)
  Sender: FDA-Public Use
  Company Number: US-BAYER-2013-065502

PATIENT
  Age: 50 Year
  Sex: Female

DRUGS (6)
  1. ACETYLSALICYLIC ACID [Suspect]
     Dosage: UNK
     Route: 048
  2. ACETYLSALICYLIC ACID [Suspect]
     Dosage: TOTAL OF 325 MG
     Route: 048
  3. ACETYLSALICYLIC ACID [Suspect]
     Dosage: 81 MG, BID
     Route: 048
  4. ACETYLSALICYLIC ACID [Suspect]
     Dosage: 650 MG, BID
  5. IBUPROFEN [Suspect]
     Route: 048
  6. MONTELUKAST [Concomitant]
     Indication: NASAL CONGESTION

REACTIONS (3)
  - Analgesic asthma syndrome [Not Recovered/Not Resolved]
  - Nasal congestion [None]
  - Rhinorrhoea [None]
